FAERS Safety Report 17296529 (Version 1)
Quarter: 2020Q1

REPORT INFORMATION
  Report Type: Spontaneous
  Country: US (occurrence: US)
  Receive Date: 20200122
  Receipt Date: 20200122
  Transmission Date: 20200409
  Serious: Yes (Hospitalization, Other)
  Sender: FDA-Public Use
  Company Number: US-APOTEX-2020AP006734

PATIENT
  Age: 55 Year
  Sex: Female

DRUGS (1)
  1. TRAZODONE HYDROCHLORIDE. [Suspect]
     Active Substance: TRAZODONE HYDROCHLORIDE
     Indication: PRODUCT USED FOR UNKNOWN INDICATION
     Dosage: UNK,  (2000-4500 MG)
     Route: 048

REACTIONS (25)
  - Suicide attempt [Unknown]
  - Gait disturbance [Recovered/Resolved]
  - Electrocardiogram P pulmonale [Recovered/Resolved]
  - Hypotension [Recovered/Resolved]
  - Wandering pacemaker [Recovered/Resolved]
  - Cardiogenic shock [Recovered/Resolved]
  - Hypokalaemia [Recovered/Resolved]
  - Atrioventricular block first degree [Recovered/Resolved]
  - Respiratory arrest [Recovered/Resolved]
  - Atrioventricular block second degree [Recovered/Resolved]
  - Nodal rhythm [Recovered/Resolved]
  - Electrocardiogram QT prolonged [Recovered/Resolved]
  - Unresponsive to stimuli [Recovered/Resolved]
  - Mental status changes [Recovered/Resolved]
  - Tachycardia [Recovered/Resolved]
  - Generalised tonic-clonic seizure [Recovered/Resolved]
  - Balance disorder [Recovered/Resolved]
  - Bundle branch block right [Recovered/Resolved]
  - Bundle branch block left [Recovered/Resolved]
  - Sinus bradycardia [Recovered/Resolved]
  - Muscle twitching [Recovered/Resolved]
  - Hypertension [Unknown]
  - Intentional overdose [Unknown]
  - Myocardial infarction [Recovered/Resolved]
  - Tremor [Recovered/Resolved]
